FAERS Safety Report 8972215 (Version 1)
Quarter: 2012Q4

REPORT INFORMATION
  Report Type: 
  Country: US (occurrence: US)
  Receive Date: 20121219
  Receipt Date: 20121219
  Transmission Date: 20130627
  Serious: No
  Sender: FDA-Public Use
  Company Number: US-MYLANLABS-2012S1013148

PATIENT
  Age: 50 Year
  Sex: Male
  Weight: 92.99 kg

DRUGS (2)
  1. LEVETIRACETAM [Suspect]
     Indication: GRAND MAL CONVULSION
     Route: 048
     Dates: start: 20110608, end: 201106
  2. CARBATROL [Concomitant]

REACTIONS (1)
  - Aura [Recovered/Resolved]
